FAERS Safety Report 17804014 (Version 1)
Quarter: 2020Q2

REPORT INFORMATION
  Report Type: Spontaneous
  Country: US (occurrence: US)
  Receive Date: 20200519
  Receipt Date: 20200519
  Transmission Date: 20200714
  Serious: No
  Sender: FDA-Public Use
  Company Number: US-ASTRAZENECA-2020SE61024

PATIENT
  Sex: Female
  Weight: 127 kg

DRUGS (1)
  1. SYMBICORT [Suspect]
     Active Substance: BUDESONIDE\FORMOTEROL FUMARATE DIHYDRATE
     Indication: ASTHMA
     Dosage: 160/4.5 MCG 2 PUFFS TWICE DAILY
     Route: 055
     Dates: start: 202002

REACTIONS (5)
  - Chest discomfort [Unknown]
  - Device issue [Unknown]
  - Cough [Unknown]
  - Dyspnoea [Unknown]
  - Product dose omission [Unknown]
